FAERS Safety Report 8817801 (Version 5)
Quarter: 2013Q2

REPORT INFORMATION
  Report Type: Spontaneous
  Country: US (occurrence: US)
  Receive Date: 20121001
  Receipt Date: 20130624
  Transmission Date: 20140414
  Serious: Yes (Hospitalization, Other)
  Sender: FDA-Public Use
  Company Number: US-009507513-1203USA04039

PATIENT
  Sex: Female
  Weight: 73.92 kg

DRUGS (10)
  1. FOSAMAX [Suspect]
     Indication: OSTEOPOROSIS
     Dosage: 10 MG, UNK
     Route: 048
     Dates: start: 199606, end: 200110
  2. FOSAMAX [Suspect]
     Dosage: 70 MG, QW
     Route: 048
     Dates: end: 200802
  3. FOSAMAX PLUS D [Suspect]
     Route: 048
  4. ALENDRONATE SODIUM [Suspect]
     Indication: OSTEOPOROSIS
     Dosage: 70 MG, QW
     Route: 048
     Dates: start: 200803, end: 201003
  5. SIMVASTATIN [Concomitant]
     Dosage: UNK
     Dates: start: 1990
  6. OMEPRAZOLE [Concomitant]
     Dosage: UNK
     Dates: start: 1999
  7. MAXIDE [Concomitant]
     Dosage: UNK
     Dates: start: 2000
  8. VITAMINS (UNSPECIFIED) [Concomitant]
     Dosage: 1 DF, UNK
     Dates: start: 1982
  9. CALCIUM (UNSPECIFIED) [Concomitant]
     Dosage: 2 DF, QD
     Dates: start: 199606
  10. VITAMIN D (UNSPECIFIED) [Concomitant]
     Dosage: 1 DF, QD
     Dates: start: 199606

REACTIONS (15)
  - Femur fracture [Recovering/Resolving]
  - Fall [Unknown]
  - Intramedullary rod insertion [Unknown]
  - Hearing impaired [Not Recovered/Not Resolved]
  - Hand fracture [Unknown]
  - Cellulitis [Not Recovered/Not Resolved]
  - Impaired healing [Unknown]
  - Hypertension [Unknown]
  - Osteopenia [Unknown]
  - Arrhythmia [Unknown]
  - Arthropathy [Unknown]
  - Rotator cuff syndrome [Unknown]
  - Upper limb fracture [Unknown]
  - Hand fracture [Unknown]
  - Device breakage [Unknown]
